FAERS Safety Report 18786076 (Version 2)
Quarter: 2021Q1

REPORT INFORMATION
  Report Type: Spontaneous
  Country: US (occurrence: US)
  Receive Date: 20210126
  Receipt Date: 20210202
  Transmission Date: 20210419
  Serious: Yes (Hospitalization, Other)
  Sender: FDA-Public Use
  Company Number: US-ABBVIE-21K-163-3743339-00

PATIENT
  Age: 68 Year
  Sex: Male
  Weight: 61.29 kg

DRUGS (1)
  1. CREON [Suspect]
     Active Substance: PANCRELIPASE AMYLASE\PANCRELIPASE LIPASE\PANCRELIPASE PROTEASE
     Indication: PANCREATITIS ACUTE
     Dosage: 3?4 CAPSULES WITH EACH MEAL AND MINIMUM OF 1 CAPSULES WITH MEAL.
     Route: 048
     Dates: start: 202006

REACTIONS (4)
  - Pseudocyst [Unknown]
  - Sepsis [Recovered/Resolved]
  - Lipase decreased [Unknown]
  - Pancreatitis acute [Not Recovered/Not Resolved]

NARRATIVE: CASE EVENT DATE: 202011
